FAERS Safety Report 6030778-5 (Version None)
Quarter: 2009Q1

REPORT INFORMATION
  Report Type: 
  Country: None (occurrence: None)
  Receive Date: 20090107
  Receipt Date: 20081230
  Transmission Date: 20090719
  Serious: Yes (Hospitalization)
  Sender: FDA-Public Use
  Company Number: PHHY2008JP33431

PATIENT

DRUGS (5)
  1. SALAGEN [Suspect]
     Indication: DRY MOUTH
     Dosage: 5 MG, QD
     Route: 048
     Dates: start: 20080612, end: 20080612
  2. ADALAT [Concomitant]
     Route: 048
  3. BLOPRESS [Concomitant]
     Route: 048
  4. FLIVAS [Concomitant]
     Route: 048
  5. RIZABEN [Concomitant]
     Indication: SCAR
     Dosage: UNK
     Route: 048
     Dates: start: 20071119

REACTIONS (3)
  - FAECAL INCONTINENCE [None]
  - LOSS OF CONSCIOUSNESS [None]
  - VOMITING [None]
